FAERS Safety Report 11520768 (Version 1)
Quarter: 2015Q3

REPORT INFORMATION
  Report Type: Spontaneous
  Country: US (occurrence: None)
  Receive Date: 20150917
  Receipt Date: 20150917
  Transmission Date: 20151125
  Serious: Yes (Other)
  Sender: FDA-Public Use
  Company Number: None

PATIENT
  Age: 72 Year
  Sex: Male
  Weight: 90.72 kg

DRUGS (2)
  1. ESCITALOPRAM 20MG TORRENT [Suspect]
     Active Substance: ESCITALOPRAM OXALATE
     Indication: DEPRESSION
     Dosage: 1  QD ORAL
     Route: 048
     Dates: start: 20150824, end: 20150914
  2. BACTRIM DS (GENERIC) 800MG RX#6564016 [Concomitant]

REACTIONS (3)
  - Product quality issue [None]
  - Depression [None]
  - Condition aggravated [None]

NARRATIVE: CASE EVENT DATE: 20150907
